FAERS Safety Report 4344715-2 (Version None)
Quarter: 2004Q2

REPORT INFORMATION
  Report Type: 
  Country: None (occurrence: None)
  Receive Date: 20040420
  Receipt Date: 20040408
  Transmission Date: 20050107
  Serious: Yes (Other)
  Sender: FDA-Public Use
  Company Number: 2004208295DE

PATIENT
  Age: 55 Year
  Weight: 86 kg

DRUGS (3)
  1. GENOTROPIN [Suspect]
     Indication: HYPOPITUITARISM
     Dosage: 0.4 MG, QD,
     Dates: start: 19990901
  2. TESTOSTERONE [Concomitant]
  3. LEVOTHYROXINE SODIUM [Concomitant]

REACTIONS (2)
  - NEOPLASM RECURRENCE [None]
  - NON-SECRETORY ADENOMA OF PITUITARY [None]
